FAERS Safety Report 6366394-5 (Version None)
Quarter: 2009Q3

REPORT INFORMATION
  Report Type: 
  Country: None (occurrence: None)
  Receive Date: 20090921
  Receipt Date: 20090910
  Transmission Date: 20100115
  Serious: Yes (Death)
  Sender: FDA-Public Use
  Company Number: US-SOLVAY-00209004250

PATIENT
  Age: 82 Year
  Sex: Female

DRUGS (1)
  1. ACEON [Suspect]
     Indication: DRUG USE FOR UNKNOWN INDICATION
     Dosage: DAILY DOSE: 8 MILLIGRAM(S)
     Route: 048
     Dates: end: 20090723

REACTIONS (1)
  - CARDIAC FAILURE [None]
